FAERS Safety Report 4807585-1 (Version None)
Quarter: 2005Q4

REPORT INFORMATION
  Report Type: 
  Country: None (occurrence: None)
  Receive Date: 20051020
  Receipt Date: 20051011
  Transmission Date: 20060501
  Serious: Yes (Other)
  Sender: FDA-Public Use
  Company Number: HQWYE818004OCT05

PATIENT
  Age: 34 Year
  Sex: Male

DRUGS (3)
  1. TYGACIL [Suspect]
     Indication: SKIN LESION
     Dosage: INTRAVENOUS
     Route: 042
     Dates: start: 20050901, end: 20051001
  2. TYGACIL [Suspect]
     Indication: STAPHYLOCOCCAL INFECTION
     Dosage: INTRAVENOUS
     Route: 042
     Dates: start: 20050901, end: 20051001
  3. UNSPECIFIED PAIN MEDICATION (UNSPECIFIED PAIN MEDICATION) [Concomitant]

REACTIONS (1)
  - PANCREATITIS [None]
